FAERS Safety Report 6928117-8 (Version None)
Quarter: 2010Q3

REPORT INFORMATION
  Report Type: 
  Country: None (occurrence: None)
  Receive Date: 20100817
  Receipt Date: 20100804
  Transmission Date: 20110219
  Serious: Yes (Hospitalization, Other)
  Sender: FDA-Public Use
  Company Number: PHHY2010JP44808

PATIENT
  Age: 75 Year
  Sex: Female

DRUGS (9)
  1. DIOVAN HCT [Suspect]
     Indication: HYPERTENSION
     Dosage: 1 DF
     Route: 048
     Dates: start: 20090828, end: 20100101
  2. DIOVAN [Suspect]
     Indication: HYPERTENSION
     Dosage: 80 MG
     Route: 048
     Dates: start: 20080926, end: 20090827
  3. DIOVAN [Suspect]
     Dosage: 160 MG
     Route: 048
     Dates: start: 20100101, end: 20100307
  4. DIOVAN [Suspect]
     Dosage: 80 MG
     Route: 048
     Dates: start: 20100308, end: 20100620
  5. ARTIST [Concomitant]
     Dosage: 2.5 MG
     Route: 048
  6. ANGINAL [Concomitant]
     Dosage: 2 DF
     Route: 048
  7. PLAVIX [Concomitant]
     Dosage: 75 MG
     Route: 048
  8. ASPIRIN [Concomitant]
     Dosage: 100 MG
     Route: 048
  9. SUNRYTHM [Concomitant]
     Dosage: 25 MG DAILY

REACTIONS (5)
  - ABDOMINAL PAIN [None]
  - ANAEMIA [None]
  - BLOOD PRESSURE FLUCTUATION [None]
  - ELECTROLYTE IMBALANCE [None]
  - GASTROINTESTINAL DISORDER [None]
